FAERS Safety Report 24645739 (Version 1)
Quarter: 2024Q4

REPORT INFORMATION
  Report Type: Spontaneous
  Country: US (occurrence: US)
  Receive Date: 20241121
  Receipt Date: 20241121
  Transmission Date: 20250115
  Serious: Yes (Life-Threatening, Hospitalization, Other)
  Sender: CIPLA
  Company Number: US-CIPLA LTD.-2024US13160

PATIENT

DRUGS (5)
  1. ALBUTEROL [Suspect]
     Active Substance: ALBUTEROL
     Indication: Asthma
     Dosage: 1 DOSAGE FORM, ALBUTEROL UP TO TWICE A WEEK
  2. ALBUTEROL [Suspect]
     Active Substance: ALBUTEROL
     Dosage: 1 DOSAGE FORM, INCREASED IT TO EVERY THREE HOURS FOR THE PAST TWO DAYS
  3. ALBUTEROL\IPRATROPIUM [Suspect]
     Active Substance: ALBUTEROL\IPRATROPIUM
     Indication: Dyspnoea
     Dosage: 3 DOSAGE FORM, THREE TREATMENTS OF NEBULIZED IPRATROPIUM BROMIDE/ALBUTEROL
     Route: 065
  4. ALBUTEROL\IPRATROPIUM [Suspect]
     Active Substance: ALBUTEROL\IPRATROPIUM
     Dosage: ADDITIONAL NEBULIZED IPRATROPIUM BROMIDE/ALBUTEROL
     Route: 065
  5. METHYLPREDNISOLONE [Concomitant]
     Active Substance: METHYLPREDNISOLONE
     Indication: Dyspnoea
     Dosage: UNK
     Route: 042

REACTIONS (3)
  - Respiratory distress [Unknown]
  - Respiratory acidosis [Unknown]
  - Asthma [Unknown]
